FAERS Safety Report 18586854 (Version 1)
Quarter: 2020Q4

REPORT INFORMATION
  Report Type: Spontaneous
  Country: US (occurrence: US)
  Receive Date: 20201013
  Receipt Date: 20201013
  Transmission Date: 20210114
  Serious: Yes (Death)
  Sender: FDA-Public Use
  Company Number: None

PATIENT
  Age: 8 Decade
  Sex: Male

DRUGS (3)
  1. HYDROXYCHLOROQUINE [Suspect]
     Active Substance: HYDROXYCHLOROQUINE
     Indication: COVID-19
     Dates: start: 2020
  2. AZITHROMYCIN ANHYDROUS. [Suspect]
     Active Substance: AZITHROMYCIN ANHYDROUS
     Indication: COVID-19
     Dates: start: 2020
  3. ALTEPLASE. [Suspect]
     Active Substance: ALTEPLASE
     Indication: COVID-19
     Dosage: ?          OTHER FREQUENCY:2 DOSES;?
     Route: 042
     Dates: start: 2020

REACTIONS (5)
  - Bacterial infection [None]
  - Off label use [None]
  - Hypotension [None]
  - Arrhythmia [None]
  - Multiple organ dysfunction syndrome [None]
